FAERS Safety Report 4604574-7 (Version None)
Quarter: 2005Q2

REPORT INFORMATION
  Report Type: 
  Country: None (occurrence: None)
  Receive Date: 20050217
  Receipt Date: 20041020
  Transmission Date: 20051028
  Serious: No
  Sender: FDA-Public Use
  Company Number: S04-USA-07017-01

PATIENT
  Age: 87 Year
  Sex: Female

DRUGS (5)
  1. NAMENDA [Suspect]
     Indication: AMNESIA
     Dosage: 15 MG QD PO
     Route: 048
     Dates: start: 20040101, end: 20040101
  2. NAMENDA [Suspect]
     Indication: AMNESIA
     Dosage: 5 MG QD PO
     Route: 048
     Dates: start: 20040901, end: 20040101
  3. NAMENDA [Suspect]
     Indication: AMNESIA
     Dosage: 10 MG QD PO
     Route: 048
     Dates: start: 20040101, end: 20040101
  4. SYNTHROID [Concomitant]
  5. ADALAT [Concomitant]

REACTIONS (3)
  - CONFUSIONAL STATE [None]
  - DIZZINESS [None]
  - GAIT DISTURBANCE [None]
